FAERS Safety Report 8424025-4 (Version None)
Quarter: 2012Q2

REPORT INFORMATION
  Report Type: 
  Country: None (occurrence: None)
  Receive Date: 20120608
  Receipt Date: 20110520
  Transmission Date: 20120825
  Serious: No
  Sender: FDA-Public Use
  Company Number: US-ASTRAZENECA-2011SE31314

PATIENT
  Age: 63 Year
  Sex: Female

DRUGS (11)
  1. PULMICORT FLEXHALER [Suspect]
     Route: 055
     Dates: end: 20100501
  2. SPIRIVA [Concomitant]
  3. LISINOPRIL [Concomitant]
  4. LEVOXYL [Concomitant]
  5. ATIVAN [Concomitant]
  6. ATENOLOL [Concomitant]
  7. PULMICORT FLEXHALER [Suspect]
     Route: 055
  8. PREMARIN [Concomitant]
  9. FLEXERIL [Concomitant]
  10. NORVASC [Concomitant]
  11. ELAVIL [Concomitant]

REACTIONS (2)
  - DYSPNOEA [None]
  - DRUG DOSE OMISSION [None]
